FAERS Safety Report 20861750 (Version 4)
Quarter: 2022Q3

REPORT INFORMATION
  Report Type: Spontaneous
  Country: AU (occurrence: AU)
  Receive Date: 20220523
  Receipt Date: 20220725
  Transmission Date: 20221027
  Serious: Yes (Other)
  Sender: FDA-Public Use
  Company Number: AU-PFIZER INC-2019042432

PATIENT
  Age: 72 Year
  Sex: Female

DRUGS (14)
  1. LYRICA [Suspect]
     Active Substance: PREGABALIN
     Indication: Neuralgia
     Dosage: 350 MG, DAILY
     Dates: start: 2015
  2. LYRICA [Suspect]
     Active Substance: PREGABALIN
     Indication: Neuropathy peripheral
     Dosage: 250 MG, UNK
  3. LYRICA [Suspect]
     Active Substance: PREGABALIN
     Indication: Compartment syndrome
     Dosage: 25 MG (AT NIGHT), AS NEEDED
  4. LYRICA [Suspect]
     Active Substance: PREGABALIN
     Dosage: 25 MG, DAILY (AT NIGHT)
  5. LYRICA [Suspect]
     Active Substance: PREGABALIN
     Dosage: UNK
     Dates: end: 2018
  6. ACETAMINOPHEN\CODEINE PHOSPHATE [Concomitant]
     Active Substance: ACETAMINOPHEN\CODEINE PHOSPHATE
     Indication: Neuralgia
     Dosage: UNK
  7. ACETAMINOPHEN\CODEINE PHOSPHATE [Concomitant]
     Active Substance: ACETAMINOPHEN\CODEINE PHOSPHATE
     Indication: Neuropathy peripheral
  8. ACETAMINOPHEN\CODEINE PHOSPHATE [Concomitant]
     Active Substance: ACETAMINOPHEN\CODEINE PHOSPHATE
     Dosage: UNK
  9. EXENATIDE [Concomitant]
     Active Substance: EXENATIDE
     Dosage: UNK
  10. METFORMIN [Concomitant]
     Active Substance: METFORMIN HYDROCHLORIDE
     Dosage: UNK
  11. PANTOPRAZOLE SODIUM [Concomitant]
     Active Substance: PANTOPRAZOLE SODIUM
     Dosage: UNK
  12. ROSUVASTATIN [Concomitant]
     Active Substance: ROSUVASTATIN
     Dosage: UNK
  13. COVID-19 VACCINE [Concomitant]
     Dosage: UNK
  14. INFLUENZA VIRUS VACCINE [Concomitant]
     Active Substance: INFLUENZA VIRUS VACCINE
     Dosage: UNK

REACTIONS (28)
  - Cataract [Unknown]
  - Retinal disorder [Unknown]
  - Suicidal ideation [Unknown]
  - Depressed mood [Unknown]
  - Product use issue [Unknown]
  - Amnesia [Recovering/Resolving]
  - Insomnia [Recovering/Resolving]
  - Aphasia [Recovering/Resolving]
  - Disturbance in attention [Recovering/Resolving]
  - Intentional product use issue [Unknown]
  - Coordination abnormal [Unknown]
  - Balance disorder [Unknown]
  - Gait disturbance [Unknown]
  - Clumsiness [Unknown]
  - Cognitive disorder [Unknown]
  - Confusional state [Unknown]
  - Anxiety [Unknown]
  - Memory impairment [Unknown]
  - Tremor [Unknown]
  - Dyslexia [Unknown]
  - Judgement impaired [Unknown]
  - Vision blurred [Unknown]
  - Stress [Unknown]
  - Loss of personal independence in daily activities [Recovered/Resolved]
  - Fall [Unknown]
  - Sensory disturbance [Unknown]
  - Post-traumatic stress disorder [Unknown]
  - Feeling abnormal [Unknown]

NARRATIVE: CASE EVENT DATE: 20160101
